FAERS Safety Report 10215610 (Version 2)
Quarter: 2014Q3

REPORT INFORMATION
  Report Type: Spontaneous
  Country: AU (occurrence: AU)
  Receive Date: 20140604
  Receipt Date: 20140704
  Transmission Date: 20150326
  Serious: Yes (Hospitalization)
  Sender: FDA-Public Use
  Company Number: AU-BRISTOL-MYERS SQUIBB COMPANY-20877288

PATIENT
  Age: 42 Year
  Sex: Female

DRUGS (1)
  1. FORXIGA [Suspect]
     Active Substance: DAPAGLIFLOZIN
     Dosage: TABS
     Route: 048
     Dates: start: 201405, end: 201405

REACTIONS (1)
  - Candida infection [Unknown]

NARRATIVE: CASE EVENT DATE: 201405
